FAERS Safety Report 11599260 (Version 4)
Quarter: 2018Q4

REPORT INFORMATION
  Report Type: Spontaneous
  Country: US (occurrence: US)
  Receive Date: 20151006
  Receipt Date: 20181220
  Transmission Date: 20190204
  Serious: Yes (Hospitalization)
  Sender: FDA-Public Use
  Company Number: US-ACTELION PHARMACEUTICALS US, INC.-A-US2015-124857

PATIENT
  Age: 61 Year
  Sex: Female

DRUGS (36)
  1. SILDENAFIL. [Concomitant]
     Active Substance: SILDENAFIL
     Dosage: UNK
  2. OPSUMIT [Suspect]
     Active Substance: MACITENTAN
     Indication: PULMONARY ARTERIAL HYPERTENSION
     Dosage: 10 MG, QD
     Route: 048
     Dates: start: 20140319
  3. SPIRIVA [Concomitant]
     Active Substance: TIOTROPIUM BROMIDE MONOHYDRATE
  4. POTASSIUM CHLORIDE. [Concomitant]
     Active Substance: POTASSIUM CHLORIDE
  5. PAROXETINE. [Concomitant]
     Active Substance: PAROXETINE
  6. VITAMIN D [Concomitant]
     Active Substance: CHOLECALCIFEROL
     Dosage: UNK
  7. OXYCODONE [Concomitant]
     Active Substance: OXYCODONE
  8. FLUTICASONE. [Concomitant]
     Active Substance: FLUTICASONE
  9. LORAZEPAM. [Concomitant]
     Active Substance: LORAZEPAM
  10. LAMOTRIGINE. [Concomitant]
     Active Substance: LAMOTRIGINE
  11. ENOXAPARIN [Concomitant]
     Active Substance: ENOXAPARIN
  12. ZOLOFT [Concomitant]
     Active Substance: SERTRALINE HYDROCHLORIDE
  13. CITALOPRAM [Concomitant]
     Active Substance: CITALOPRAM HYDROBROMIDE
  14. WARFARIN [Concomitant]
     Active Substance: WARFARIN
  15. ULTRAM [Concomitant]
     Active Substance: TRAMADOL HYDROCHLORIDE
  16. METHOCARBAMOL. [Concomitant]
     Active Substance: METHOCARBAMOL
  17. REMODULIN [Concomitant]
     Active Substance: TREPROSTINIL
     Dosage: UNK
  18. HYDROCHLOROTHIAZIDE. [Concomitant]
     Active Substance: HYDROCHLOROTHIAZIDE
  19. TRAMADOL. [Concomitant]
     Active Substance: TRAMADOL
  20. ALBUTEROL. [Concomitant]
     Active Substance: ALBUTEROL
  21. MAGNESIUM OXIDE. [Concomitant]
     Active Substance: MAGNESIUM OXIDE
  22. OMEPRAZOLE. [Concomitant]
     Active Substance: OMEPRAZOLE
  23. FLUCONAZOLE. [Concomitant]
     Active Substance: FLUCONAZOLE
  24. TORSEMIDE. [Concomitant]
     Active Substance: TORSEMIDE
  25. PREVACID [Concomitant]
     Active Substance: LANSOPRAZOLE
  26. FLUOXETINE [Concomitant]
     Active Substance: FLUOXETINE HYDROCHLORIDE
  27. LORATADINE. [Concomitant]
     Active Substance: LORATADINE
  28. FEROSAL [Concomitant]
  29. BUPROPION. [Concomitant]
     Active Substance: BUPROPION
  30. ZOLPIDEM [Concomitant]
     Active Substance: ZOLPIDEM\ZOLPIDEM TARTRATE
  31. GABAPENTIN. [Concomitant]
     Active Substance: GABAPENTIN
  32. NYSTATIN. [Concomitant]
     Active Substance: NYSTATIN
  33. SPIRONOLACTONE. [Concomitant]
     Active Substance: SPIRONOLACTONE
  34. VICODIN [Concomitant]
     Active Substance: ACETAMINOPHEN\HYDROCODONE BITARTRATE
  35. LASIX [Concomitant]
     Active Substance: FUROSEMIDE
     Dosage: UNK
  36. QUETIAPINE. [Concomitant]
     Active Substance: QUETIAPINE

REACTIONS (7)
  - Fluid retention [Unknown]
  - Dyspnoea [Unknown]
  - Pain in extremity [Unknown]
  - Pleural effusion [Unknown]
  - Lethargy [Unknown]
  - Headache [Not Recovered/Not Resolved]
  - Diarrhoea [Unknown]

NARRATIVE: CASE EVENT DATE: 20181130
